FAERS Safety Report 5954043-7 (Version None)
Quarter: 2008Q4

REPORT INFORMATION
  Report Type: 
  Country: None (occurrence: None)
  Receive Date: 20081114
  Receipt Date: 20081107
  Transmission Date: 20090506
  Serious: Yes (Hospitalization, Disabling, Other)
  Sender: FDA-Public Use
  Company Number: US-GILEAD-2008-0017579

PATIENT
  Sex: Female
  Weight: 57.204 kg

DRUGS (7)
  1. LETAIRIS [Suspect]
     Indication: PULMONARY HYPERTENSION
     Route: 048
     Dates: start: 20080605, end: 20080724
  2. TOPROL-XL [Concomitant]
     Indication: ATRIAL FIBRILLATION
     Route: 048
  3. DIGOXIN [Concomitant]
     Indication: ATRIAL FIBRILLATION
     Route: 048
  4. WARFARIN SODIUM [Concomitant]
     Indication: ATRIAL FIBRILLATION
     Route: 048
  5. POTASSIUM CHLORIDE [Concomitant]
     Indication: HYPOKALAEMIA
     Route: 048
  6. LASIX [Concomitant]
     Indication: OEDEMA
     Route: 048
  7. ALPRAZOLAM [Concomitant]
     Indication: ANXIETY
     Route: 048

REACTIONS (1)
  - ANAEMIA [None]
